FAERS Safety Report 4811534-X (Version None)
Quarter: 2005Q4

REPORT INFORMATION
  Report Type: 
  Country: None (occurrence: None)
  Receive Date: 20051027
  Receipt Date: 20050506
  Transmission Date: 20060501
  Serious: Yes (Hospitalization, Other)
  Sender: FDA-Public Use
  Company Number: US-GILEAD-2005-0008320

PATIENT
  Age: 52 Year
  Sex: Male
  Weight: 77 kg

DRUGS (8)
  1. TENOFOVIR DISOPROXIL FUMARATE [Suspect]
     Indication: HIV INFECTION
     Route: 048
     Dates: start: 20030901, end: 20050202
  2. TRUVADA [Suspect]
     Indication: HIV INFECTION
     Route: 048
     Dates: start: 20050414, end: 20050419
  3. AZT [Concomitant]
     Indication: HIV INFECTION
     Dates: start: 20050414, end: 20050419
  4. AZT [Concomitant]
     Dates: start: 20030901, end: 20050202
  5. ATAZANAVIR [Concomitant]
     Indication: HIV INFECTION
     Dates: start: 20050414, end: 20050419
  6. ATAZANAVIR [Concomitant]
     Dates: start: 20030901, end: 20050202
  7. RITONAVIR [Concomitant]
     Indication: HIV INFECTION
     Dates: start: 20050414, end: 20050202
  8. RITONAVIR [Concomitant]
     Dates: start: 20030901, end: 20050202

REACTIONS (6)
  - ALANINE AMINOTRANSFERASE INCREASED [None]
  - ASPARTATE AMINOTRANSFERASE INCREASED [None]
  - ASTHENIA [None]
  - BLOOD CREATININE INCREASED [None]
  - DIARRHOEA [None]
  - HEPATITIS B ANTIBODY POSITIVE [None]
